FAERS Safety Report 15390852 (Version 2)
Quarter: 2019Q1

REPORT INFORMATION
  Report Type: Report from Study
  Country: US (occurrence: US)
  Receive Date: 20180917
  Receipt Date: 20190102
  Transmission Date: 20190417
  Serious: No
  Sender: FDA-Public Use
  Company Number: US-SA-2018SA257913

PATIENT
  Age: 41 Year
  Sex: Male

DRUGS (6)
  1. PLACEBO [Suspect]
     Active Substance: UNSPECIFIED INGREDIENT
     Indication: NASAL POLYPS
     Dosage: 2 ML, Q2W
     Route: 058
     Dates: start: 20170706
  2. LIDOCAINE. [Concomitant]
     Active Substance: LIDOCAINE
     Dosage: UNK
     Route: 045
     Dates: start: 20170605
  3. TYLENOL 8HR [Concomitant]
     Active Substance: ACETAMINOPHEN
     Dosage: 500 MG, UNK
     Route: 048
     Dates: start: 1996
  4. SALINE KARE [Concomitant]
     Dosage: UNK
     Route: 045
     Dates: start: 201703
  5. MOMETASONE FUROATE. [Suspect]
     Active Substance: MOMETASONE FUROATE
     Indication: NASAL POLYPS
     Dosage: 400 UG, UNK
     Route: 045
     Dates: start: 20170605
  6. AFRIN [OXYMETAZOLINE] [Concomitant]
     Dosage: UNK
     Route: 045
     Dates: start: 20170605

REACTIONS (1)
  - Sinusitis [Recovered/Resolved]

NARRATIVE: CASE EVENT DATE: 20180326
